FAERS Safety Report 8352560-6 (Version None)
Quarter: 2012Q2

REPORT INFORMATION
  Report Type: 
  Country: None (occurrence: None)
  Receive Date: 20120511
  Receipt Date: 20120509
  Transmission Date: 20120825
  Serious: Yes (Death, Other)
  Sender: FDA-Public Use
  Company Number: PHHY2012MT035036

PATIENT
  Age: 73 Year
  Sex: Female

DRUGS (3)
  1. ANTIDEPRESSANTS [Concomitant]
     Indication: DEPRESSION
  2. ZOLEDRONOC ACID [Suspect]
     Indication: OSTEOPOROSIS POSTMENOPAUSAL
     Dosage: 5 MG ONCE YEARLY
     Route: 042
     Dates: start: 20080101
  3. SEDATIVES [Concomitant]

REACTIONS (5)
  - GINGIVAL DISORDER [None]
  - CHRONIC OBSTRUCTIVE PULMONARY DISEASE [None]
  - TOOTH DISORDER [None]
  - DENTAL NECROSIS [None]
  - IMPAIRED HEALING [None]
